FAERS Safety Report 21254459 (Version 4)
Quarter: 2022Q4

REPORT INFORMATION
  Report Type: Spontaneous
  Country: DE (occurrence: DE)
  Receive Date: 20220825
  Receipt Date: 20221220
  Transmission Date: 20230113
  Serious: Yes (Death, Hospitalization, Other)
  Sender: FDA-Public Use
  Company Number: DE-BRISTOL-MYERS SQUIBB COMPANY-2022-093804

PATIENT
  Age: 69 Year
  Sex: Female
  Weight: 74 kg

DRUGS (2)
  1. OPDIVO [Suspect]
     Active Substance: NIVOLUMAB
     Indication: Malignant melanoma
     Dosage: DOSE :OPDIVO (1MG/KG)    FREQ : UNAVAILABLE
     Route: 042
     Dates: start: 20210331, end: 20210705
  2. YERVOY [Suspect]
     Active Substance: IPILIMUMAB
     Indication: Malignant melanoma
     Dosage: YERVOY (3MG/KG)
     Route: 042
     Dates: start: 20210331, end: 20210705

REACTIONS (4)
  - Hypothyroidism [Unknown]
  - Ileus [Fatal]
  - Thyrotoxic crisis [Recovered/Resolved]
  - Prescribed overdose [Unknown]

NARRATIVE: CASE EVENT DATE: 20210514
